FAERS Safety Report 13735624 (Version 1)
Quarter: 2017Q3

REPORT INFORMATION
  Report Type: Spontaneous
  Country: US (occurrence: US)
  Receive Date: 20170708
  Receipt Date: 20170708
  Transmission Date: 20171127
  Serious: Yes (Disabling)
  Sender: FDA-Public Use
  Company Number: None

PATIENT
  Age: 62 Year
  Sex: Female
  Weight: 99 kg

DRUGS (13)
  1. DULERA [Suspect]
     Active Substance: FORMOTEROL FUMARATE DIHYDRATE\MOMETASONE FUROATE
     Indication: ASTHMA
     Dosage: ?          OTHER STRENGTH:MCG;QUANTITY:2 PUFF(S);?
     Route: 055
     Dates: start: 20160214, end: 20160229
  2. LOVASTATIN. [Concomitant]
     Active Substance: LOVASTATIN
  3. SYMBICORT [Suspect]
     Active Substance: BUDESONIDE\FORMOTEROL FUMARATE DIHYDRATE
     Indication: ASTHMA
     Dosage: ?          OTHER STRENGTH:MCG;QUANTITY:2 PUFF(S);?
     Route: 055
     Dates: start: 20160320, end: 20160407
  4. AMLODIPINE [Concomitant]
     Active Substance: AMLODIPINE BESYLATE
  5. SINGULAIR/MONTELUKAST [Concomitant]
  6. ADVAIR HFA [Concomitant]
     Active Substance: FLUTICASONE PROPIONATE\SALMETEROL XINAFOATE
  7. BABY ASPIRIN [Concomitant]
     Active Substance: ASPIRIN
  8. MULTIVITAMIN [Concomitant]
     Active Substance: VITAMINS
  9. LOSARTAN. [Concomitant]
     Active Substance: LOSARTAN
  10. PROVENTIL [Concomitant]
     Active Substance: ALBUTEROL
  11. LORATIDINE [Concomitant]
     Active Substance: LORATADINE
  12. ACETAMINOPHEN. [Concomitant]
     Active Substance: ACETAMINOPHEN
  13. IBUPROFEN. [Concomitant]
     Active Substance: IBUPROFEN

REACTIONS (9)
  - Joint stiffness [None]
  - Impaired work ability [None]
  - Oxygen saturation decreased [None]
  - Dyspnoea [None]
  - Asthma [None]
  - Tremor [None]
  - Fatigue [None]
  - Judgement impaired [None]
  - Gait inability [None]

NARRATIVE: CASE EVENT DATE: 20160229
